FAERS Safety Report 7589078-4 (Version None)
Quarter: 2011Q3

REPORT INFORMATION
  Report Type: 
  Country: None (occurrence: None)
  Receive Date: 20110705
  Receipt Date: 20110620
  Transmission Date: 20111222
  Serious: Yes (Hospitalization, Other)
  Sender: FDA-Public Use
  Company Number: US-BAYER-2011-022359

PATIENT
  Sex: Female
  Weight: 45 kg

DRUGS (4)
  1. YASMIN [Suspect]
  2. YAZ [Suspect]
     Indication: CONTRACEPTION
     Dosage: UNK
     Dates: start: 20060601, end: 20070801
  3. DROSPIRENONE AND ETHINYL ESTRADIOL [Suspect]
     Indication: PRODUCT USED FOR UNKNOWN INDICATION
  4. YAZ [Suspect]
     Dosage: UNK
     Dates: start: 20080101, end: 20090101

REACTIONS (6)
  - GALLBLADDER DISORDER [None]
  - CHOLECYSTITIS CHRONIC [None]
  - NAUSEA [None]
  - CHOLELITHIASIS [None]
  - VOMITING [None]
  - ABDOMINAL PAIN UPPER [None]
